FAERS Safety Report 25891030 (Version 1)
Quarter: 2025Q4

REPORT INFORMATION
  Report Type: Spontaneous
  Country: US (occurrence: None)
  Receive Date: 20251007
  Receipt Date: 20251007
  Transmission Date: 20260118
  Serious: Yes (Other)
  Sender: FDA-CTU
  Company Number: None

PATIENT
  Age: 12 Year
  Sex: Male
  Weight: 35.1 kg

DRUGS (2)
  1. LISDEXAMFETAMINE DIMESYLATE [Suspect]
     Active Substance: LISDEXAMFETAMINE DIMESYLATE
     Indication: Attention deficit hyperactivity disorder
     Dosage: FREQUENCY : DAILY;?
     Route: 048
     Dates: start: 20250905, end: 20251003
  2. CLONIDINE [Concomitant]
     Active Substance: CLONIDINE

REACTIONS (4)
  - Dyskinesia [None]
  - Erythema [None]
  - Eyelid irritation [None]
  - Skin disorder [None]

NARRATIVE: CASE EVENT DATE: 20250919
